FAERS Safety Report 4352300-1 (Version None)
Quarter: 2004Q2

REPORT INFORMATION
  Report Type: 
  Country: None (occurrence: None)
  Receive Date: 20040504
  Receipt Date: 20040127
  Transmission Date: 20050107
  Serious: Yes (Hospitalization, Other)
  Sender: FDA-Public Use
  Company Number: 200410320FR

PATIENT
  Age: 66 Year
  Sex: Male

DRUGS (5)
  1. ARAVA [Suspect]
     Indication: RHEUMATOID ARTHRITIS
     Route: 048
     Dates: start: 20000901
  2. CORTANCYL [Suspect]
     Route: 048
     Dates: start: 20000901, end: 20030301
  3. MEDROL [Suspect]
     Route: 048
     Dates: start: 20030301
  4. OMEPRAZOLE [Concomitant]
     Route: 048
     Dates: start: 20000901
  5. DURAGESIC [Concomitant]
     Route: 062

REACTIONS (43)
  - ABDOMINAL DISTENSION [None]
  - ABDOMINAL PAIN [None]
  - ACUTE RESPIRATORY DISTRESS SYNDROME [None]
  - BALANCE DISORDER [None]
  - BLOOD LACTIC ACID INCREASED [None]
  - BLOOD PH DECREASED [None]
  - BLOOD PRESSURE ABNORMAL [None]
  - BLOOD PRESSURE INCREASED [None]
  - BLOOD PRESSURE SYSTOLIC DECREASED [None]
  - BLOOD PRESSURE SYSTOLIC INCREASED [None]
  - BRONCHITIS [None]
  - C-REACTIVE PROTEIN INCREASED [None]
  - CANDIDIASIS [None]
  - CHEST PAIN [None]
  - CYANOSIS [None]
  - DIZZINESS [None]
  - DYSPNOEA [None]
  - ENTEROCOCCAL INFECTION [None]
  - ESCHERICHIA INFECTION [None]
  - HEADACHE [None]
  - HEPARIN-INDUCED THROMBOCYTOPENIA [None]
  - HYPOTHERMIA [None]
  - LEGIONELLA INFECTION [None]
  - LEUKOPENIA [None]
  - LIVEDO RETICULARIS [None]
  - LUNG DISORDER [None]
  - NEUROPATHY PERIPHERAL [None]
  - OXYGEN SATURATION DECREASED [None]
  - PCO2 DECREASED [None]
  - PERIPHERAL COLDNESS [None]
  - PNEUMOCOCCAL INFECTION [None]
  - PNEUMONIA [None]
  - PO2 DECREASED [None]
  - RALES [None]
  - RENAL FAILURE ACUTE [None]
  - SEPTIC SHOCK [None]
  - SUPERINFECTION [None]
  - TACHYCARDIA [None]
  - TACHYPNOEA [None]
  - TINNITUS [None]
  - URETHRITIS [None]
  - URINARY TRACT INFECTION [None]
  - VENTRICULAR HYPERTROPHY [None]
